FAERS Safety Report 7439399-0 (Version None)
Quarter: 2011Q2

REPORT INFORMATION
  Report Type: 
  Country: None (occurrence: None)
  Receive Date: 20110427
  Receipt Date: 20110418
  Transmission Date: 20111010
  Serious: Yes (Life-Threatening, Other)
  Sender: FDA-Public Use
  Company Number: CA-TEVA-277756USA

PATIENT
  Age: 74 Year
  Sex: Female

DRUGS (10)
  1. ALENDRONATE SODIUM [Concomitant]
  2. LORAZEPAM [Concomitant]
  3. OMEPRAZOLE [Concomitant]
  4. AMLODIPINE [Concomitant]
  5. MIRTAZAPINE [Concomitant]
  6. METOPROLOL [Interacting]
  7. CLINDAMYCIN HCL [Suspect]
     Dosage: 4 DOSAGE FORMS;
     Route: 048
  8. ACETYLSALICYLIC ACID SRT [Concomitant]
  9. CALCITE D [Concomitant]
  10. SIMVASTATIN [Concomitant]

REACTIONS (5)
  - DEHYDRATION [None]
  - ASTHENIA [None]
  - FAECES DISCOLOURED [None]
  - DIARRHOEA [None]
  - CLOSTRIDIUM TEST POSITIVE [None]
